FAERS Safety Report 18381927 (Version 4)
Quarter: 2020Q4

REPORT INFORMATION
  Report Type: Spontaneous
  Country: US (occurrence: US)
  Receive Date: 20201014
  Receipt Date: 20201104
  Transmission Date: 20210114
  Serious: Yes (Hospitalization, Congenital Anomaly, Other)
  Sender: FDA-Public Use
  Company Number: US-GILEAD-2020-0498881

PATIENT
  Age: 0 Year
  Sex: Male
  Weight: 1.7 kg

DRUGS (13)
  1. EPCLUSA [Suspect]
     Active Substance: SOFOSBUVIR\VELPATASVIR
     Indication: HEPATITIS C
     Dosage: 1 DOSAGE FORM
     Route: 064
     Dates: start: 20191022, end: 20200114
  2. LORAZEPAM. [Concomitant]
     Active Substance: LORAZEPAM
  3. CEFAZOLIN [Concomitant]
     Active Substance: CEFAZOLIN
  4. BUPIVICAINE [Concomitant]
     Active Substance: BUPIVACAINE
  5. HYDROXYZINE [Concomitant]
     Active Substance: HYDROXYZINE HYDROCHLORIDE
  6. BUSPIRONE [Concomitant]
     Active Substance: BUSPIRONE HYDROCHLORIDE
  7. FENTANYL. [Concomitant]
     Active Substance: FENTANYL
  8. FLUOXETINE [Concomitant]
     Active Substance: FLUOXETINE HYDROCHLORIDE
  9. MIRTAZEPINE TEVA [Concomitant]
     Active Substance: MIRTAZAPINE
  10. METOCLOPRAMIDE. [Concomitant]
     Active Substance: METOCLOPRAMIDE
  11. BUPRENORPHINE;NALOXONE [Concomitant]
     Active Substance: BUPRENORPHINE\NALOXONE
  12. OXYTOCIN. [Concomitant]
     Active Substance: OXYTOCIN
  13. MAGNESIUM [Concomitant]
     Active Substance: MAGNESIUM

REACTIONS (4)
  - Premature baby [Unknown]
  - Limb asymmetry [Not Recovered/Not Resolved]
  - Foetal growth restriction [Recovered/Resolved]
  - Foetal exposure during pregnancy [Recovered/Resolved]

NARRATIVE: CASE EVENT DATE: 20200107
